FAERS Safety Report 7184091-3 (Version None)
Quarter: 2010Q4

REPORT INFORMATION
  Report Type: 
  Country: None (occurrence: None)
  Receive Date: 20101210
  Receipt Date: 20101123
  Transmission Date: 20110411
  Serious: Yes (Hospitalization)
  Sender: FDA-Public Use
  Company Number: 2010-01109

PATIENT
  Age: 74 Year
  Sex: Male

DRUGS (5)
  1. SIMVASTATIN [Suspect]
     Indication: HYPERCHOLESTEROLAEMIA
     Dosage: 40 MG (40 MG,1 IN 1 D),ORAL
     Route: 048
     Dates: end: 20101118
  2. ASPIRIN [Concomitant]
  3. DIPYRIDAMOLE [Concomitant]
  4. ENALAPRIL [Concomitant]
  5. RANITIDINE [Concomitant]

REACTIONS (2)
  - RHABDOMYOLYSIS [None]
  - SYNCOPE [None]
